FAERS Safety Report 6084089-2 (Version None)
Quarter: 2009Q1

REPORT INFORMATION
  Report Type: 
  Country: None (occurrence: None)
  Receive Date: 20090217
  Receipt Date: 20090205
  Transmission Date: 20090719
  Serious: Yes (Death, Hospitalization, Other)
  Sender: FDA-Public Use
  Company Number: 2007-00483

PATIENT
  Age: 56 Year
  Sex: Male
  Weight: 82 kg

DRUGS (30)
  1. VELCADE [Suspect]
     Indication: MULTIPLE MYELOMA
     Dosage: 2.30 MG/M2, INTRAVENOUS; 1.70 MG, INTRAVENOUS; 2.20 MG, INTRAVENOUS
     Route: 042
     Dates: start: 20070129, end: 20070312
  2. VELCADE [Suspect]
     Indication: MULTIPLE MYELOMA
     Dosage: 2.30 MG/M2, INTRAVENOUS; 1.70 MG, INTRAVENOUS; 2.20 MG, INTRAVENOUS
     Route: 042
     Dates: start: 20070824, end: 20070824
  3. VELCADE [Suspect]
     Indication: MULTIPLE MYELOMA
     Dosage: 2.30 MG/M2, INTRAVENOUS; 1.70 MG, INTRAVENOUS; 2.20 MG, INTRAVENOUS
     Route: 042
     Dates: start: 20070907, end: 20071005
  4. DEXAMETHASONE TAB [Suspect]
     Indication: MULTIPLE MYELOMA
     Dosage: 20.00 MG, ORAL
     Route: 048
     Dates: start: 20060824, end: 20070313
  5. DIFLUCAN [Concomitant]
  6. OMEPRAZOLE [Concomitant]
  7. LEVOFLOXACIN [Concomitant]
  8. BROTIZOLAM (BROTIZOLAM) [Concomitant]
  9. MAGNESIUM OXIDE (MAGNESIUM OXIDE) [Concomitant]
  10. MONILAC (LACTULOSE) [Concomitant]
  11. BAKTAR (SULFAMETHOXAZOLE, TRIMETHOPRIM) TABLET [Concomitant]
  12. SUCRALFATE [Concomitant]
  13. DEXAMETHASONE [Concomitant]
  14. HYDROCORTONE (HYDROCORTISONE) [Concomitant]
  15. ITRIZOLE (ITRACONAZOLE) SOLUTION (EXCEPT SYRUP) [Concomitant]
  16. ALLOPURINOL [Concomitant]
  17. ZOMETA [Concomitant]
  18. PLATELETS [Concomitant]
  19. VENOGLOBULIN [Concomitant]
  20. LASIX [Concomitant]
  21. NEO-MINOPHAGEN C (GLYCYRRHIZIC ACID, AMMONIUM SALT) [Concomitant]
  22. POLARAMINE [Concomitant]
  23. GRAN [Concomitant]
  24. RED BLOOD CELLS [Concomitant]
  25. NAUZELIN (DOMPERIDONE) [Concomitant]
  26. PRIMPERAN (METOCLORPAMIDE) [Concomitant]
  27. VALTREX [Concomitant]
  28. METHYCOBAL (MECOBALAMIN) [Concomitant]
  29. CLONAZEPAM [Concomitant]
  30. LORAZEPAM [Concomitant]

REACTIONS (16)
  - ANAEMIA [None]
  - CONSTIPATION [None]
  - DIARRHOEA [None]
  - DISEASE PROGRESSION [None]
  - HYPOAESTHESIA [None]
  - LYMPHOCYTE COUNT DECREASED [None]
  - NERVOUS SYSTEM DISORDER [None]
  - NEUROGENIC BLADDER [None]
  - NEUROPATHY PERIPHERAL [None]
  - PLATELET COUNT DECREASED [None]
  - PNEUMONIA [None]
  - SYSTEMIC CANDIDA [None]
  - TUMOUR LYSIS SYNDROME [None]
  - URINARY RETENTION [None]
  - VOMITING [None]
  - WHITE BLOOD CELL COUNT DECREASED [None]
